FAERS Safety Report 18741836 (Version 2)
Quarter: 2021Q1

REPORT INFORMATION
  Report Type: Spontaneous
  Country: CA (occurrence: CA)
  Receive Date: 20210114
  Receipt Date: 20210224
  Transmission Date: 20210419
  Serious: Yes (Death, Other)
  Sender: FDA-Public Use
  Company Number: CA-PURDUE-USA-2020-0196989

PATIENT
  Age: 30 Year
  Sex: Female

DRUGS (1)
  1. OXYCONTIN [Suspect]
     Active Substance: OXYCODONE HYDROCHLORIDE
     Indication: ABDOMINAL PAIN UPPER
     Dosage: 80 MG, TID
     Route: 048
     Dates: start: 2010, end: 2012

REACTIONS (3)
  - Drug abuse [Unknown]
  - Overdose [Fatal]
  - Drug dependence [Unknown]

NARRATIVE: CASE EVENT DATE: 201808
